FAERS Safety Report 4804428-7 (Version None)
Quarter: 2005Q4

REPORT INFORMATION
  Report Type: 
  Country: None (occurrence: None)
  Receive Date: 20051020
  Receipt Date: 20050409
  Transmission Date: 20060501
  Serious: Yes (Death)
  Sender: FDA-Public Use
  Company Number: GB-GLAXOSMITHKLINE-B0377369A

PATIENT
  Age: 69 Year
  Sex: Female

DRUGS (6)
  1. ROPINIROLE [Suspect]
     Indication: PARKINSON'S DISEASE
     Dosage: 1MG THREE TIMES PER DAY
     Route: 048
     Dates: start: 20050201
  2. ATORVASTATIN [Concomitant]
     Dosage: 10MG PER DAY
     Route: 048
  3. ASPIRIN [Concomitant]
     Dosage: 75MG PER DAY
     Route: 048
  4. BENDROFLUAZIDE [Concomitant]
     Dosage: 2.5MG PER DAY
     Route: 048
  5. BISOPROLOL [Concomitant]
     Dosage: 5MG PER DAY
     Route: 048
  6. AMITRIPTYLINE HCL [Concomitant]
     Dosage: 15MG PER DAY
     Route: 048

REACTIONS (3)
  - ARTERIOSCLEROSIS [None]
  - HYPERTENSION [None]
  - SUDDEN DEATH [None]
